FAERS Safety Report 5306921-X (Version None)
Quarter: 2007Q2

REPORT INFORMATION
  Report Type: 
  Country: None (occurrence: None)
  Receive Date: 20070419
  Receipt Date: 20070410
  Transmission Date: 20071010
  Serious: Yes (Other)
  Sender: FDA-Public Use
  Company Number: 07-000799

PATIENT
  Age: 50 Year
  Sex: Female
  Weight: 68 kg

DRUGS (1)
  1. FEMHRT [Suspect]
     Indication: CONTRACEPTION
     Dosage: 1.0MG/5MCG, QD, ORAL
     Route: 048
     Dates: start: 20061101, end: 20070201

REACTIONS (1)
  - TENDONITIS [None]
